FAERS Safety Report 7501763-9 (Version None)
Quarter: 2011Q2

REPORT INFORMATION
  Report Type: 
  Country: None (occurrence: None)
  Receive Date: 20110523
  Receipt Date: 20110523
  Transmission Date: 20111010
  Serious: Yes (Hospitalization)
  Sender: FDA-Public Use
  Company Number: None

PATIENT
  Age: 59 Year
  Sex: Female
  Weight: 130 kg

DRUGS (25)
  1. FLOVENT [Concomitant]
  2. PATADAY [Concomitant]
  3. FLONASE [Concomitant]
  4. LORATADINE [Concomitant]
  5. GABAPENTIN [Concomitant]
  6. LACTATE [Concomitant]
  7. TORADOL [Suspect]
     Indication: PAIN
     Dosage: 30MG ONCE IM RECENT
     Route: 030
  8. PRAVASTATIN [Concomitant]
  9. METFORMIN HCL [Concomitant]
  10. METOPROLOL TARTRATE [Concomitant]
  11. KLOR-CON [Concomitant]
  12. FERROUS SULFATE TAB [Concomitant]
  13. BUMEX [Concomitant]
  14. TYLENOL-500 [Concomitant]
  15. NORCO [Concomitant]
  16. LEVAQUIN [Concomitant]
  17. AMMONIUM [Concomitant]
  18. SINGULAIR [Concomitant]
  19. PRILOSEC [Concomitant]
  20. HYDROCHLOROTHIAZIDE [Concomitant]
  21. LISINOPRIL [Concomitant]
  22. CLONIDINE [Concomitant]
  23. ALBUTEROL SULFATE AUTOHALER [Concomitant]
  24. COMBIVENT [Concomitant]
  25. TRAZODONE HCL [Concomitant]

REACTIONS (4)
  - DRUG HYPERSENSITIVITY [None]
  - CHOKING [None]
  - BRONCHOSPASM [None]
  - BRONCHITIS [None]
